FAERS Safety Report 24212868 (Version 1)
Quarter: 2024Q3

REPORT INFORMATION
  Report Type: Spontaneous
  Country: CN (occurrence: CN)
  Receive Date: 20240815
  Receipt Date: 20240815
  Transmission Date: 20241016
  Serious: Yes (Life-Threatening, Hospitalization)
  Sender: ROCHE
  Company Number: CN-ROCHE-10000057874

PATIENT
  Age: 60 Year
  Sex: Female
  Weight: 38 kg

DRUGS (4)
  1. BEVACIZUMAB [Suspect]
     Active Substance: BEVACIZUMAB
     Indication: Rectal cancer
     Route: 042
     Dates: start: 20240710, end: 20240710
  2. FLUOROURACIL [Suspect]
     Active Substance: FLUOROURACIL
     Indication: Rectal cancer
     Route: 050
     Dates: start: 20240710, end: 20240710
  3. FLUOROURACIL [Suspect]
     Active Substance: FLUOROURACIL
     Route: 050
     Dates: start: 20240712, end: 20240712
  4. IRINOTECAN HYDROCHLORIDE [Suspect]
     Active Substance: IRINOTECAN HYDROCHLORIDE
     Indication: Rectal cancer
     Route: 042
     Dates: start: 20240710, end: 20240710

REACTIONS (1)
  - Myelosuppression [Recovering/Resolving]

NARRATIVE: CASE EVENT DATE: 20240728
